FAERS Safety Report 20348702 (Version 1)
Quarter: 2022Q1

REPORT INFORMATION
  Report Type: Report from Study
  Country: CA (occurrence: CA)
  Receive Date: 20220119
  Receipt Date: 20220119
  Transmission Date: 20220423
  Serious: Yes (Other)
  Sender: FDA-Public Use
  Company Number: CA-ABBVIE-22K-028-4238014-00

PATIENT
  Sex: Male

DRUGS (2)
  1. HUMIRA [Suspect]
     Active Substance: ADALIMUMAB
     Indication: Crohn^s disease
     Route: 058
     Dates: start: 20070319
  2. HUMIRA [Suspect]
     Active Substance: ADALIMUMAB
     Route: 058

REACTIONS (7)
  - Oesophageal achalasia [Unknown]
  - Surgery [Unknown]
  - Asthenia [Unknown]
  - Functional gastrointestinal disorder [Unknown]
  - Oesophageal discomfort [Unknown]
  - Abnormal faeces [Unknown]
  - Arthralgia [Unknown]
